FAERS Safety Report 5407324-X (Version None)
Quarter: 2007Q3

REPORT INFORMATION
  Report Type: 
  Country: None (occurrence: None)
  Receive Date: 20070807
  Receipt Date: 20070726
  Transmission Date: 20080115
  Serious: Yes (Disabling)
  Sender: FDA-Public Use
  Company Number: FR-ROCHE-507186

PATIENT
  Age: 66 Year
  Sex: Male
  Weight: 100 kg

DRUGS (7)
  1. ROCEPHIN [Suspect]
     Indication: BACTERIAL INFECTION
     Dosage: THERAPY STOPPED FOR EIGHT DAYS.
     Route: 042
  2. ROCEPHIN [Suspect]
     Route: 042
     Dates: start: 20070619, end: 20070710
  3. FLAGYL [Interacting]
     Indication: BACTERIAL INFECTION
     Route: 065
  4. OGAST [Concomitant]
     Indication: GASTRITIS
     Route: 048
     Dates: start: 20020101
  5. DETENSIEL [Concomitant]
     Route: 048
     Dates: start: 20020101
  6. PLAVIX [Concomitant]
     Route: 048
     Dates: start: 20020101
  7. ALLOPURINOL [Concomitant]
     Indication: GOUT
     Dosage: REPORTED FOR 10 YEARS.
     Route: 048

REACTIONS (6)
  - DIARRHOEA [None]
  - DYSGEUSIA [None]
  - NAUSEA [None]
  - ORAL CANDIDIASIS [None]
  - STOMATITIS [None]
  - UNEVALUABLE EVENT [None]
